FAERS Safety Report 17962098 (Version 1)
Quarter: 2020Q2

REPORT INFORMATION
  Report Type: Spontaneous
  Country: US (occurrence: US)
  Receive Date: 20200630
  Receipt Date: 20200630
  Transmission Date: 20200714
  Serious: No
  Sender: FDA-Public Use
  Company Number: US-PFIZER INC-2020249294

PATIENT
  Age: 62 Year
  Sex: Female
  Weight: 60.33 kg

DRUGS (3)
  1. ELETRIPTAN HBR [Suspect]
     Active Substance: ELETRIPTAN HYDROBROMIDE
     Indication: MIGRAINE
     Dosage: 40 MG, AS NEEDED
     Route: 048
     Dates: start: 2020, end: 202006
  2. METOPROLOL. [Concomitant]
     Active Substance: METOPROLOL
     Dosage: UNK [25 MG, TAKES HALF A TABLET]
  3. GABAPENTIN. [Concomitant]
     Active Substance: GABAPENTIN
     Indication: BACK DISORDER
     Dosage: 1 DF, DAILY [1 CAPSULE A DAY]

REACTIONS (2)
  - Drug ineffective [Not Recovered/Not Resolved]
  - Malaise [Unknown]

NARRATIVE: CASE EVENT DATE: 202003
